FAERS Safety Report 6409482-7 (Version None)
Quarter: 2009Q4

REPORT INFORMATION
  Report Type: 
  Country: None (occurrence: None)
  Receive Date: 20091016
  Receipt Date: 20091012
  Transmission Date: 20100525
  Serious: Yes (Hospitalization, Other)
  Sender: FDA-Public Use
  Company Number: 2009SP024983

PATIENT
  Age: 80 Year
  Sex: Female
  Weight: 72.5755 kg

DRUGS (1)
  1. MIRALAX [Suspect]
     Indication: CONSTIPATION
     Dosage: 17 GM; QD; PO
     Route: 048

REACTIONS (10)
  - ABDOMINAL DISCOMFORT [None]
  - BALANCE DISORDER [None]
  - BLOOD POTASSIUM DECREASED [None]
  - CONVULSION [None]
  - FALL [None]
  - MALAISE [None]
  - NO THERAPEUTIC RESPONSE [None]
  - PAIN [None]
  - PYREXIA [None]
  - URINARY RETENTION [None]
